FAERS Safety Report 13803729 (Version 2)
Quarter: 2017Q3

REPORT INFORMATION
  Report Type: Report from Study
  Country: MX (occurrence: MX)
  Receive Date: 20170728
  Receipt Date: 20170817
  Transmission Date: 20171127
  Serious: No
  Sender: FDA-Public Use
  Company Number: MX-UCBSA-2017029098

PATIENT
  Sex: Female
  Weight: 13 kg

DRUGS (5)
  1. LEVETIRACETAM. [Suspect]
     Active Substance: LEVETIRACETAM
     Indication: PARTIAL SEIZURES
     Dosage: 0.5 ML, ONCE DAILY (QD) (STRENGTH: 100MG/ML)
     Route: 048
     Dates: start: 20170525, end: 201706
  2. LEVETIRACETAM. [Suspect]
     Active Substance: LEVETIRACETAM
     Dosage: 1 ML, 2X/DAY (BID)
     Dates: start: 201706, end: 201706
  3. LEVETIRACETAM. [Suspect]
     Active Substance: LEVETIRACETAM
     Dosage: 1 ML, ONCE DAILY (QD)
     Route: 048
     Dates: start: 201706, end: 201706
  4. LEVETIRACETAM. [Suspect]
     Active Substance: LEVETIRACETAM
     Dosage: 2 ML, 2X/DAY (BID)
     Route: 048
     Dates: start: 201706
  5. LEVETIRACETAM. [Suspect]
     Active Substance: LEVETIRACETAM
     Dosage: 1 ML IN MORNING AND 1.5 ML IN NIGHT, 2X/DAY (BID)
     Route: 048
     Dates: start: 201706, end: 201706

REACTIONS (1)
  - No adverse event [Unknown]
